FAERS Safety Report 7245949-X (Version None)
Quarter: 2011Q1

REPORT INFORMATION
  Report Type: 
  Country: None (occurrence: None)
  Receive Date: 20110126
  Receipt Date: 20110114
  Transmission Date: 20110831
  Serious: Yes (Other)
  Sender: FDA-Public Use
  Company Number: GB-WATSON-2011-00829

PATIENT
  Age: 17 Year
  Sex: Male
  Weight: 80 kg

DRUGS (1)
  1. RISPERIDONE [Suspect]
     Indication: SCHIZOPHRENIA, PARANOID TYPE
     Dosage: 5 MG, UNKNOWN
     Route: 048
     Dates: start: 20100801

REACTIONS (3)
  - TARDIVE DYSKINESIA [None]
  - WHITE BLOOD CELL COUNT DECREASED [None]
  - NEUTROPENIA [None]
